FAERS Safety Report 22517065 (Version 2)
Quarter: 2023Q2

REPORT INFORMATION
  Report Type: Spontaneous
  Country: CA (occurrence: CA)
  Receive Date: 20230603
  Receipt Date: 20230629
  Transmission Date: 20230721
  Serious: Yes (Other)
  Sender: FDA-Public Use
  Company Number: CA-AUROBINDO-AUR-APL-2023-039692

PATIENT
  Sex: Male

DRUGS (14)
  1. AMLODIPINE [Suspect]
     Active Substance: AMLODIPINE BESYLATE
     Indication: Prinzmetal angina
     Dosage: UNK
     Route: 065
  2. AMLODIPINE [Suspect]
     Active Substance: AMLODIPINE BESYLATE
     Indication: Hereditary alpha tryptasaemia
     Dosage: UNK
     Route: 065
  3. APIXABAN [Suspect]
     Active Substance: APIXABAN
     Indication: Prinzmetal angina
     Dosage: UNK
     Route: 065
  4. APIXABAN [Suspect]
     Active Substance: APIXABAN
     Indication: Hereditary alpha tryptasaemia
  5. BOSENTAN [Suspect]
     Active Substance: BOSENTAN
     Indication: Prinzmetal angina
     Dosage: UNK
     Route: 065
  6. BOSENTAN [Suspect]
     Active Substance: BOSENTAN
     Indication: Hereditary alpha tryptasaemia
  7. DILTIAZEM [Suspect]
     Active Substance: DILTIAZEM
     Indication: Prinzmetal angina
     Dosage: UNK
     Route: 065
  8. DILTIAZEM [Suspect]
     Active Substance: DILTIAZEM
     Indication: Hereditary alpha tryptasaemia
  9. ISOSORBIDE MONONITRATE [Suspect]
     Active Substance: ISOSORBIDE MONONITRATE
     Indication: Prinzmetal angina
     Dosage: UNK
     Route: 065
  10. ISOSORBIDE MONONITRATE [Suspect]
     Active Substance: ISOSORBIDE MONONITRATE
     Indication: Hereditary alpha tryptasaemia
  11. MOMETASONE [Suspect]
     Active Substance: MOMETASONE
     Indication: Prinzmetal angina
     Dosage: UNK
     Route: 065
  12. MOMETASONE [Suspect]
     Active Substance: MOMETASONE
     Indication: Hereditary alpha tryptasaemia
  13. PREDNISONE [Suspect]
     Active Substance: PREDNISONE
     Indication: Prinzmetal angina
     Dosage: UNK
     Route: 065
  14. PREDNISONE [Suspect]
     Active Substance: PREDNISONE
     Indication: Hereditary alpha tryptasaemia

REACTIONS (3)
  - Coronary artery disease [Unknown]
  - Hypersensitivity [Unknown]
  - Mast cell activation syndrome [Unknown]
